FAERS Safety Report 7564756-1 (Version None)
Quarter: 2011Q2

REPORT INFORMATION
  Report Type: 
  Country: None (occurrence: None)
  Receive Date: 20110622
  Receipt Date: 20110127
  Transmission Date: 20111010
  Serious: Yes (Other)
  Sender: FDA-Public Use
  Company Number: US-MYLANLABS-2010S1019909

PATIENT
  Age: 27 Year
  Sex: Female

DRUGS (15)
  1. LORATADINE [Concomitant]
  2. CARBAMAZEPINE [Concomitant]
  3. DEPAKOTE ER [Concomitant]
  4. TRAZODONE HCL [Concomitant]
  5. KLONOPIN [Concomitant]
  6. LEXAPRO [Concomitant]
  7. NITROFURANTOIN [Concomitant]
  8. CLOZAPINE [Suspect]
     Dates: start: 20110110
  9. BUSPAR [Concomitant]
  10. OMEPRAZOLE [Concomitant]
  11. CLOZAPINE [Suspect]
     Indication: PSYCHOTIC DISORDER
     Dates: start: 20100816, end: 20110103
  12. MEDROXYPROGESTERONE /00115202/ [Concomitant]
  13. ASTELIN [Concomitant]
  14. BENZTROPINE MESYLATE [Concomitant]
  15. OXYBUTYNIN [Concomitant]

REACTIONS (1)
  - GRANULOCYTOPENIA [None]
